FAERS Safety Report 7597221-6 (Version None)
Quarter: 2011Q3

REPORT INFORMATION
  Report Type: 
  Country: None (occurrence: None)
  Receive Date: 20110708
  Receipt Date: 20101007
  Transmission Date: 20111222
  Serious: No
  Sender: FDA-Public Use
  Company Number: US-GLAXOSMITHKLINE-A0885462A

PATIENT
  Age: 75 Year
  Sex: Female

DRUGS (2)
  1. SPIRIVA [Concomitant]
  2. FLOVENT [Suspect]
     Indication: CHRONIC OBSTRUCTIVE PULMONARY DISEASE
     Dosage: 2PUFF TWICE PER DAY
     Dates: start: 20100701

REACTIONS (1)
  - MIDDLE INSOMNIA [None]
